FAERS Safety Report 4621143-3 (Version None)
Quarter: 2005Q1

REPORT INFORMATION
  Report Type: 
  Country: None (occurrence: None)
  Receive Date: 20050328
  Receipt Date: 20050316
  Transmission Date: 20050727
  Serious: No
  Sender: FDA-Public Use
  Company Number: 2004GB03133

PATIENT
  Sex: Female
  Weight: 58.9676 kg

DRUGS (3)
  1. CRESTOR [Suspect]
     Dosage: 40 MG DAILY PO
     Route: 048
     Dates: start: 20040701, end: 20040801
  2. CRESTOR [Suspect]
     Dosage: 10 MG DAILY PO
     Route: 048
  3. EZETROL [Concomitant]

REACTIONS (4)
  - HYPOAESTHESIA ORAL [None]
  - PARAESTHESIA ORAL [None]
  - PHARYNGEAL HYPOAESTHESIA [None]
  - SWOLLEN TONGUE [None]
